FAERS Safety Report 13013445 (Version 1)
Quarter: 2016Q4

REPORT INFORMATION
  Report Type: Spontaneous
  Country: FR (occurrence: FR)
  Receive Date: 20161209
  Receipt Date: 20161209
  Transmission Date: 20170207
  Serious: Yes (Life-Threatening)
  Sender: FDA-Public Use
  Company Number: FR-FRESENIUS KABI-FK201609653

PATIENT
  Age: 61 Year
  Sex: Male
  Weight: 88 kg

DRUGS (5)
  1. MIDAZOLAM [Suspect]
     Active Substance: MIDAZOLAM\MIDAZOLAM HYDROCHLORIDE
     Indication: GENERAL ANAESTHESIA
     Route: 042
     Dates: start: 20160519, end: 20160519
  2. SUFENTANIL MYLAN [Suspect]
     Active Substance: SUFENTANIL
     Indication: GENERAL ANAESTHESIA
     Route: 042
     Dates: start: 20160519, end: 20160519
  3. PROPOFOL FRESENIUS (NOT SPECIFIED) [Suspect]
     Active Substance: PROPOFOL
     Indication: GENERAL ANAESTHESIA
     Route: 042
     Dates: start: 20160519, end: 20160519
  4. AMOXICILLINE ACIDE CLAVULANIQUE PANPHARMA [Suspect]
     Active Substance: AMOXICILLIN\CLAVULANIC ACID
     Indication: GENERAL ANAESTHESIA
     Route: 042
     Dates: start: 20160519, end: 20160519
  5. CISATRACURIUM HOSPIRA [Suspect]
     Active Substance: CISATRACURIUM
     Indication: GENERAL ANAESTHESIA
     Route: 042
     Dates: start: 20160519, end: 20160519

REACTIONS (3)
  - Apallic syndrome [Unknown]
  - Anaphylactic shock [Recovered/Resolved with Sequelae]
  - Cardio-respiratory arrest [Recovered/Resolved with Sequelae]

NARRATIVE: CASE EVENT DATE: 20160519
